FAERS Safety Report 14624794 (Version 4)
Quarter: 2018Q2

REPORT INFORMATION
  Report Type: Spontaneous
  Country: US (occurrence: US)
  Receive Date: 20180312
  Receipt Date: 20180509
  Transmission Date: 20180711
  Serious: No
  Sender: FDA-Public Use
  Company Number: US-PFIZER INC-2018095003

PATIENT
  Sex: Female
  Weight: 68.2 kg

DRUGS (2)
  1. XANAX [Suspect]
     Active Substance: ALPRAZOLAM
     Indication: FLASHBACK
  2. XANAX [Suspect]
     Active Substance: ALPRAZOLAM
     Indication: POST-TRAUMATIC STRESS DISORDER
     Dosage: 2 MG, UNK (ONE TABLET BY MOUTH SIX TIMES DAILY)
     Route: 048

REACTIONS (5)
  - Crying [Unknown]
  - Visual impairment [Unknown]
  - Condition aggravated [Unknown]
  - Nervousness [Unknown]
  - Drug ineffective [Unknown]
